FAERS Safety Report 6392161-2 (Version None)
Quarter: 2009Q4

REPORT INFORMATION
  Report Type: 
  Country: None (occurrence: None)
  Receive Date: 20091005
  Receipt Date: 20090922
  Transmission Date: 20100525
  Serious: Yes (Hospitalization)
  Sender: FDA-Public Use
  Company Number: 8051412

PATIENT
  Age: 48 Year
  Sex: Female

DRUGS (2)
  1. KEPPRA [Suspect]
     Indication: PETIT MAL EPILEPSY
     Dosage: 500 MG /D PO
     Route: 048
     Dates: start: 20090816, end: 20090821
  2. MYCOSTATIN /00036501/ [Concomitant]

REACTIONS (1)
  - RHABDOMYOLYSIS [None]
